FAERS Safety Report 9310974 (Version 1)
Quarter: 2013Q2

REPORT INFORMATION
  Report Type: Spontaneous
  Country: US (occurrence: None)
  Receive Date: 20130523
  Receipt Date: 20130523
  Transmission Date: 20140414
  Serious: No
  Sender: FDA-Public Use
  Company Number: None

PATIENT
  Age: 52 Year
  Sex: Female
  Weight: 86.18 kg

DRUGS (1)
  1. VENLAFAXINE HCL [Suspect]
     Indication: HOT FLUSH
     Dosage: ONE TABLET EVERY DAY PO
     Route: 048
     Dates: start: 20130501, end: 20130503

REACTIONS (7)
  - Pruritus [None]
  - Somnolence [None]
  - Yawning [None]
  - Heart rate increased [None]
  - Somnolence [None]
  - Dry mouth [None]
  - Dizziness [None]
